FAERS Safety Report 8455322-4 (Version None)
Quarter: 2012Q2

REPORT INFORMATION
  Report Type: 
  Country: None (occurrence: None)
  Receive Date: 20120621
  Receipt Date: 20120618
  Transmission Date: 20120825
  Serious: Yes (Hospitalization, Disabling, Other)
  Sender: FDA-Public Use
  Company Number: US-PFIZER INC-2012146558

PATIENT
  Sex: Female
  Weight: 87.982 kg

DRUGS (12)
  1. PROCARDIA XL [Suspect]
     Indication: HYPERTENSION
     Dosage: 60 MG, DAILY
     Dates: start: 20071201
  2. DIOVAN [Suspect]
     Indication: HYPERTENSION
     Dosage: 180 MG, DAILY
     Dates: start: 20071201
  3. LEVOTHYROXINE [Concomitant]
     Indication: HYPOTHYROIDISM
     Dosage: UNK
  4. DIOVAN [Suspect]
     Dosage: 320 MG, DAILY
  5. PLAVIX [Concomitant]
     Indication: ANTICOAGULANT THERAPY
     Dosage: UNK
  6. RANEXA [Concomitant]
     Indication: ANGINA PECTORIS
     Dosage: UNK
  7. LIPITOR [Suspect]
     Indication: BLOOD CHOLESTEROL INCREASED
     Dosage: UNK
  8. ASPIRIN [Concomitant]
     Indication: ANTICOAGULANT THERAPY
     Dosage: UNK
  9. LASIX [Concomitant]
     Indication: ELECTROLYTE IMBALANCE
     Dosage: UNK
  10. LOTREL [Suspect]
     Indication: HYPERTENSION
     Dosage: UNK
     Dates: end: 20071201
  11. ALPRAZOLAM [Concomitant]
     Indication: ANXIETY
     Dosage: UNK
  12. NEXIUM [Concomitant]
     Indication: DYSPEPSIA
     Dosage: UNK

REACTIONS (7)
  - DRUG INEFFECTIVE [None]
  - ARTERIAL OCCLUSIVE DISEASE [None]
  - FATIGUE [None]
  - DISEASE PROGRESSION [None]
  - DYSPNOEA [None]
  - CARDIAC DISORDER [None]
  - MUSCULOSKELETAL STIFFNESS [None]
